FAERS Safety Report 9538770 (Version 1)
Quarter: 2013Q2

REPORT INFORMATION
  Report Type: Spontaneous
  Country: US (occurrence: None)
  Receive Date: 20130507
  Receipt Date: 20130507
  Transmission Date: 20140414
  Serious: No
  Sender: FDA-Public Use
  Company Number: PHEH2012US025400

PATIENT
  Sex: Female
  Weight: 63.5 kg

DRUGS (4)
  1. AFINITOR (RAD) UNKNOWN [Suspect]
     Indication: BREAST CANCER
     Dosage: 5 MG, UNK, ORAL
     Route: 048
  2. LEVOTHYROXIN (LEVOTHYROXINE SODIUM) [Concomitant]
  3. ENALAPRIL (ENALAPRIL) [Concomitant]
  4. EXEMESTANE (EXEMESTANE) [Concomitant]

REACTIONS (7)
  - Dizziness [None]
  - Abdominal pain [None]
  - Diarrhoea [None]
  - Stomatitis [None]
  - Vomiting [None]
  - Chest pain [None]
  - Decreased appetite [None]
